FAERS Safety Report 9914051 (Version 1)
Quarter: 2014Q1

REPORT INFORMATION
  Report Type: Spontaneous
  Country: PT (occurrence: PT)
  Receive Date: 20140220
  Receipt Date: 20140220
  Transmission Date: 20141002
  Serious: Yes (Disabling)
  Sender: FDA-Public Use
  Company Number: PT-GLAXOSMITHKLINE-B0970839A

PATIENT
  Age: 6 Year
  Sex: Male
  Weight: 26 kg

DRUGS (2)
  1. ZOREF [Suspect]
     Indication: EAR INFECTION
     Dosage: 250MG TWICE PER DAY
     Route: 048
     Dates: start: 20140120, end: 20140122
  2. BRUFEN [Concomitant]
     Indication: EAR INFECTION
     Dosage: 12ML AS REQUIRED
     Route: 048

REACTIONS (2)
  - Myalgia [Recovered/Resolved]
  - Dysstasia [Recovered/Resolved]
